FAERS Safety Report 8924577 (Version 1)
Quarter: 2012Q4

REPORT INFORMATION
  Report Type: 
  Country: CA (occurrence: CA)
  Receive Date: 20121126
  Receipt Date: 20121126
  Transmission Date: 20130627
  Serious: Yes (Other)
  Sender: FDA-Public Use
  Company Number: CA-NAPPMUNDI-CAN-2012-0003519

PATIENT
  Age: 32 Year
  Sex: Female

DRUGS (13)
  1. HYDROMORPH CONTIN [Suspect]
     Indication: PRODUCT USED FOR UNKNOWN INDICATION
     Dosage: UNK
     Route: 042
  2. HYDROMORPH CONTIN [Suspect]
     Dosage: UNK
     Route: 045
  3. DILAUDID [Suspect]
     Indication: PRODUCT USED FOR UNKNOWN INDICATION
     Dosage: UNK
     Route: 065
  4. HYDROMORPHONE HCL [Suspect]
     Indication: PRODUCT USED FOR UNKNOWN INDICATION
     Dosage: UNK
     Route: 065
  5. OXYCONTIN TABLETS [Suspect]
     Indication: PRODUCT USED FOR UNKNOWN INDICATION
     Route: 042
  6. MORPHINE SULFATE [Suspect]
     Indication: PRODUCT USED FOR UNKNOWN INDICATION
     Dosage: UNK
     Route: 065
  7. COCAINE [Suspect]
     Indication: PRODUCT USED FOR UNKNOWN INDICATION
     Dosage: UNK
     Route: 065
  8. LYSERGIC ACID DIETHYLAMIDE [Suspect]
     Indication: PRODUCT USED FOR UNKNOWN INDICATION
     Dosage: UNK
     Route: 065
  9. NICOTINE [Suspect]
     Indication: PRODUCT USED FOR UNKNOWN INDICATION
     Dosage: UNK
     Route: 055
  10. MESCALINE [Suspect]
  11. CANNABIS SATIVA SUBSP. INDICA TOP [Suspect]
     Indication: PRODUCT USED FOR UNKNOWN INDICATION
     Dosage: UNK
     Route: 055
  12. AMPHETAMINE [Suspect]
     Indication: PRODUCT USED FOR UNKNOWN INDICATION
     Dosage: UNK
     Route: 065
  13. PSILOCYBINE [Suspect]

REACTIONS (13)
  - Drug dependence [Unknown]
  - Substance abuse [Unknown]
  - Antisocial behaviour [Unknown]
  - Aggression [Unknown]
  - Exposure to contaminated device [Unknown]
  - Emotional poverty [Unknown]
  - Flushing [Unknown]
  - Fatigue [Unknown]
  - Nausea [Unknown]
  - Hyperhidrosis [Unknown]
  - Euphoric mood [Unknown]
  - Drug dependence [None]
  - Wrong technique in drug usage process [None]
